FAERS Safety Report 9849249 (Version 1)
Quarter: 2013Q4

REPORT INFORMATION
  Report Type: Spontaneous
  Country: US (occurrence: None)
  Receive Date: 20131224
  Receipt Date: 20131224
  Transmission Date: 20140711
  Serious: Yes (Disabling)
  Sender: FDA-Public Use
  Company Number: PHEH2013US019030

PATIENT
  Sex: Female

DRUGS (1)
  1. AFINITOR (RAD) [Suspect]
     Indication: BREAST CANCER
     Route: 048

REACTIONS (1)
  - Stomatitis [None]
